FAERS Safety Report 22888233 (Version 2)
Quarter: 2023Q4

REPORT INFORMATION
  Report Type: Report from Study
  Country: CA (occurrence: CA)
  Receive Date: 20230831
  Receipt Date: 20231114
  Transmission Date: 20240109
  Serious: Yes (Death, Hospitalization, Other)
  Sender: FDA-Public Use
  Company Number: CA-PFIZER INC-202300285557

PATIENT
  Age: 72 Year
  Sex: Female

DRUGS (3)
  1. RITUXIMAB [Suspect]
     Active Substance: RITUXIMAB
     Indication: Autoimmune haemolytic anaemia
     Dosage: 555.0 MG (VIAL)
     Route: 042
     Dates: start: 2023
  2. RITUXIMAB [Suspect]
     Active Substance: RITUXIMAB
     Dosage: 1000.0 MG (VIAL)
     Route: 042
  3. RITUXIMAB [Suspect]
     Active Substance: RITUXIMAB
     Dosage: 555.0 MG (VIAL)
     Route: 042
     Dates: start: 2023

REACTIONS (7)
  - Death [Fatal]
  - Pyrexia [Fatal]
  - Malaise [Fatal]
  - Feeling abnormal [Fatal]
  - Sepsis [Fatal]
  - Off label use [Unknown]
  - Product use in unapproved indication [Unknown]
